FAERS Safety Report 8159189-3 (Version None)
Quarter: 2012Q1

REPORT INFORMATION
  Report Type: 
  Country: None (occurrence: None)
  Receive Date: 20120223
  Receipt Date: 20120209
  Transmission Date: 20120608
  Serious: Yes (Death, Hospitalization, Other)
  Sender: FDA-Public Use
  Company Number: IT-CELGENEUS-083-50794-11052244

PATIENT

DRUGS (1)
  1. VIDAZA [Suspect]
     Route: 050
     Dates: start: 20090901, end: 20110501

REACTIONS (9)
  - ACUTE MYELOID LEUKAEMIA [None]
  - PNEUMONIA [None]
  - THROMBOCYTOPENIA [None]
  - NEUTROPENIA [None]
  - NAUSEA [None]
  - CARDIAC DISORDER [None]
  - PRURITUS [None]
  - MYELODYSPLASTIC SYNDROME TRANSFORMATION [None]
  - NEUTROPENIC INFECTION [None]
